FAERS Safety Report 20024334 (Version 3)
Quarter: 2021Q4

REPORT INFORMATION
  Report Type: Spontaneous
  Country: AR (occurrence: AR)
  Receive Date: 20211102
  Receipt Date: 20211112
  Transmission Date: 20220303
  Serious: Yes (Other)
  Sender: FDA-Public Use
  Company Number: AR-PFIZER INC-202101463669

PATIENT
  Age: 11 Year
  Sex: Male

DRUGS (1)
  1. METHOTREXATE SODIUM [Suspect]
     Active Substance: METHOTREXATE SODIUM
     Indication: T-cell type acute leukaemia
     Dosage: 12 MG (10 MG/M2), CYCLIC
     Route: 037

REACTIONS (3)
  - Cerebrovascular accident [Recovered/Resolved]
  - Encephalopathy [Recovered/Resolved]
  - Neurotoxicity [Recovered/Resolved]
